FAERS Safety Report 5236857-4 (Version None)
Quarter: 2007Q1

REPORT INFORMATION
  Report Type: 
  Country: None (occurrence: None)
  Receive Date: 20070213
  Receipt Date: 20070206
  Transmission Date: 20070707
  Serious: Yes (Death, Hospitalization)
  Sender: FDA-Public Use
  Company Number: ES-JNJFOC-20070201361

PATIENT
  Age: 88 Year
  Sex: Female
  Weight: 65 kg

DRUGS (9)
  1. DURAGESIC-100 [Suspect]
     Indication: BACK PAIN
     Route: 062
  2. ADOLANTA [Suspect]
     Indication: BACK PAIN
     Route: 048
  3. SEVREDOL [Suspect]
     Indication: BACK PAIN
     Route: 048
  4. NOLOTIL [Suspect]
     Indication: BACK PAIN
     Route: 048
  5. ACETAMINOPHEN [Suspect]
     Indication: BACK PAIN
     Route: 048
  6. ASPIRIN [Suspect]
     Indication: MYOCARDIAL ISCHAEMIA
     Route: 048
  7. NSAIDS [Concomitant]
     Indication: BACK PAIN
     Route: 048
  8. CO-RENITEC [Suspect]
     Indication: HYPERTENSION
     Route: 048
  9. CARDURA [Suspect]
     Indication: HYPERTENSION
     Route: 048

REACTIONS (3)
  - ACIDOSIS [None]
  - CONFUSIONAL STATE [None]
  - RENAL FAILURE ACUTE [None]
